FAERS Safety Report 8808893 (Version 1)
Quarter: 2012Q4

REPORT INFORMATION
  Report Type: Spontaneous
  Country: US (occurrence: None)
  Receive Date: 20120920
  Receipt Date: 20120920
  Transmission Date: 20130627
  Serious: No
  Sender: FDA-Public Use
  Company Number: None

PATIENT
  Age: 71 Year
  Sex: Female
  Weight: 95.26 kg

DRUGS (1)
  1. PREDNISONE [Suspect]
     Indication: POLYMYALGIA
     Dosage: 6 mg 2 x per day

REACTIONS (4)
  - Muscle spasms [None]
  - Pain in extremity [None]
  - Arthralgia [None]
  - Musculoskeletal stiffness [None]
